FAERS Safety Report 7755165-0 (Version None)
Quarter: 2011Q3

REPORT INFORMATION
  Report Type: 
  Country: None (occurrence: None)
  Receive Date: 20110916
  Receipt Date: 20110912
  Transmission Date: 20111222
  Serious: No
  Sender: FDA-Public Use
  Company Number: US-PFIZER INC-2011215585

PATIENT

DRUGS (1)
  1. VERAPAMIL HCL [Suspect]
     Dosage: TABLET 80 M, UNK

REACTIONS (1)
  - HYPERTENSION [None]
